FAERS Safety Report 11234172 (Version 1)
Quarter: 2015Q3

REPORT INFORMATION
  Report Type: Spontaneous
  Country: US (occurrence: US)
  Receive Date: 20150702
  Receipt Date: 20150702
  Transmission Date: 20151125
  Serious: No
  Sender: FDA-Public Use
  Company Number: US-PFIZER INC-2015218640

PATIENT

DRUGS (1)
  1. XANAX [Suspect]
     Active Substance: ALPRAZOLAM
     Dosage: UNK

REACTIONS (6)
  - Hypersomnia [Unknown]
  - Lacrimation increased [Unknown]
  - Diarrhoea [Unknown]
  - Rhinorrhoea [Unknown]
  - Headache [Unknown]
  - Muscle spasms [Unknown]
